FAERS Safety Report 23754781 (Version 1)
Quarter: 2024Q2

REPORT INFORMATION
  Report Type: Spontaneous
  Country: PT (occurrence: PT)
  Receive Date: 20240418
  Receipt Date: 20240418
  Transmission Date: 20240716
  Serious: Yes (Hospitalization, Other)
  Sender: FDA-Public Use
  Company Number: PT-Accord-371971

PATIENT
  Age: 41 Year
  Sex: Female

DRUGS (3)
  1. MYCOPHENOLATE MOFETIL [Suspect]
     Active Substance: MYCOPHENOLATE MOFETIL
     Indication: Immunosuppression
  2. TACROLIMUS [Suspect]
     Active Substance: TACROLIMUS
     Indication: Immunosuppression
  3. PREDNISOLONE [Suspect]
     Active Substance: PREDNISOLONE
     Indication: Immunosuppression

REACTIONS (6)
  - Adenovirus infection [Recovered/Resolved]
  - Renal impairment [Recovered/Resolved]
  - Human polyomavirus infection [Recovered/Resolved]
  - Cytomegalovirus infection [Recovered/Resolved]
  - Leukocytosis [Recovered/Resolved]
  - Pancreatic enzyme abnormality [Recovered/Resolved]
